FAERS Safety Report 18776953 (Version 3)
Quarter: 2022Q1

REPORT INFORMATION
  Report Type: Report from Study
  Country: DE (occurrence: DE)
  Receive Date: 20210122
  Receipt Date: 20220203
  Transmission Date: 20220424
  Serious: Yes (Hospitalization)
  Sender: FDA-Public Use
  Company Number: DE-ABBVIE-21K-062-3740808-00

PATIENT
  Age: 41 Year
  Sex: Male

DRUGS (4)
  1. HUMIRA [Suspect]
     Active Substance: ADALIMUMAB
     Indication: Rheumatoid arthritis
     Route: 058
     Dates: start: 201703, end: 201802
  2. HUMIRA [Suspect]
     Active Substance: ADALIMUMAB
     Route: 058
     Dates: start: 201804, end: 20200316
  3. METHOTREXATE [Suspect]
     Active Substance: METHOTREXATE
     Indication: Rheumatoid arthritis
     Dosage: END DATE-BETWEEN 26-SEP-2017-28-FEB-2018
     Route: 065
     Dates: start: 201703, end: 20170926
  4. METHOTREXATE [Suspect]
     Active Substance: METHOTREXATE
     Dosage: START DATE-BETWEEN-26-SEP-2017-28-FEB-2018?END DATE-BETWEEN 26-OCT-2020-08-JUN-2021
     Route: 065
     Dates: start: 20170926, end: 20201026

REACTIONS (5)
  - Aortic valve incompetence [Not Recovered/Not Resolved]
  - Atrial septal defect acquired [Not Recovered/Not Resolved]
  - Enanthema [Unknown]
  - Intervertebral disc annular tear [Unknown]
  - Haemorrhagic disorder [Unknown]

NARRATIVE: CASE EVENT DATE: 20200803
